FAERS Safety Report 13362886 (Version 2)
Quarter: 2017Q3

REPORT INFORMATION
  Report Type: Report from Study
  Country: US (occurrence: US)
  Receive Date: 20170323
  Receipt Date: 20170824
  Transmission Date: 20171127
  Serious: Yes (Hospitalization, Other)
  Sender: FDA-Public Use
  Company Number: US-SHIRE-US201706091

PATIENT
  Age: 8 Year
  Sex: Female
  Weight: 29 kg

DRUGS (4)
  1. ALTEPLASE. [Concomitant]
     Active Substance: ALTEPLASE
     Indication: DEVICE OCCLUSION
     Dosage: 1 MG, ONE DOSE
     Route: 065
     Dates: start: 20160315, end: 20160316
  2. TPN [Concomitant]
     Active Substance: AMINO ACIDS\DEXTROSE\ELECTROLYTES NOS\SOYBEAN OIL
     Indication: SHORT-BOWEL SYNDROME
     Dosage: UNK UNK, UNKNOWN
     Route: 065
  3. BACTRIM DS [Concomitant]
     Active Substance: SULFAMETHOXAZOLE\TRIMETHOPRIM
     Indication: ANTIBIOTIC PROPHYLAXIS
     Dosage: 80 MG, 2X/DAY:BID
     Route: 065
     Dates: start: 20170315
  4. TEDUGLUTIDE [Suspect]
     Active Substance: TEDUGLUTIDE
     Indication: SHORT-BOWEL SYNDROME
     Dosage: 0.025 MG/KG, 1X/DAY:QD
     Route: 058
     Dates: start: 20161103, end: 20170315

REACTIONS (1)
  - Ileus [Recovered/Resolved]

NARRATIVE: CASE EVENT DATE: 20170315
